FAERS Safety Report 4432363-5 (Version None)
Quarter: 2004Q3

REPORT INFORMATION
  Report Type: 
  Country: None (occurrence: None)
  Receive Date: 20040820
  Receipt Date: 20040810
  Transmission Date: 20050211
  Serious: Yes (Life-Threatening, Hospitalization)
  Sender: FDA-Public Use
  Company Number: 2004227938US

PATIENT
  Age: 56 Year
  Sex: Male
  Weight: 96.6 kg

DRUGS (8)
  1. CAMPTOSAR [Suspect]
     Indication: COLON CANCER
     Dosage: 380 MG, CYCLIC
     Dates: start: 20040719
  2. IMODIUM [Suspect]
     Dosage: EVERY 2 HOURS
     Dates: start: 20040807
  3. FLUOROURACIL [Concomitant]
  4. LEUCOVORIN CALCIUM [Concomitant]
  5. ATORVASTATIN (ATORVASTATIN) [Concomitant]
  6. DIOVAN [Concomitant]
  7. CALAN [Concomitant]
  8. ZOFRAN [Concomitant]

REACTIONS (10)
  - ABDOMINAL PAIN [None]
  - BLOOD CALCIUM DECREASED [None]
  - BLOOD GLUCOSE INCREASED [None]
  - BLOOD SODIUM DECREASED [None]
  - DIARRHOEA [None]
  - HEART RATE INCREASED [None]
  - NEUTROPENIA [None]
  - PLATELET COUNT DECREASED [None]
  - PYREXIA [None]
  - WHITE BLOOD CELL COUNT DECREASED [None]
